FAERS Safety Report 5316582-1 (Version None)
Quarter: 2007Q2

REPORT INFORMATION
  Report Type: 
  Country: None (occurrence: None)
  Receive Date: 20070504
  Receipt Date: 20070425
  Transmission Date: 20071010
  Serious: Yes (Other)
  Sender: FDA-Public Use
  Company Number: GBWYE539026APR07

PATIENT
  Sex: Male

DRUGS (2)
  1. ENBREL [Suspect]
     Indication: DRUG USE FOR UNKNOWN INDICATION
     Dosage: 50 MG FREQUENCY UNKNOWN
     Route: 058
     Dates: start: 20070301, end: 20070407
  2. ANTIHISTAMINES FOR SYSTEMIC USE [Suspect]
     Indication: URTICARIA
     Dosage: UNKNOWN
     Dates: start: 20070423

REACTIONS (2)
  - RASH PAPULAR [None]
  - URTICARIA [None]
